FAERS Safety Report 6694094-0 (Version None)
Quarter: 2010Q2

REPORT INFORMATION
  Report Type: 
  Country: None (occurrence: None)
  Receive Date: 20100423
  Receipt Date: 20100406
  Transmission Date: 20101027
  Serious: Yes (Hospitalization, Other)
  Sender: FDA-Public Use
  Company Number: US-ROCHE-685225

PATIENT
  Sex: Female
  Weight: 92.4 kg

DRUGS (14)
  1. BEVACIZUMAB [Suspect]
     Indication: GLIOBLASTOMA MULTIFORME
     Dosage: DURATION: 83 WEEKS
     Route: 042
     Dates: start: 20090520, end: 20100128
  2. EVEROLIMUS [Suspect]
     Indication: GLIOBLASTOMA MULTIFORME
     Dosage: ROUTE: PI
     Route: 065
     Dates: start: 20090827
  3. KEPPRA [Concomitant]
     Route: 065
     Dates: start: 20090409
  4. LORAZEPAM [Concomitant]
     Dosage: 0.5 MG, UNK
     Dates: start: 20090515
  5. PEPCID [Concomitant]
     Dosage: UNK
     Dates: start: 20090409
  6. DECADRON [Concomitant]
     Dosage: UNK
     Dates: start: 20090409
  7. DEPAKOTE [Concomitant]
     Dates: start: 20090812
  8. METOPROLOL TARTRATE [Concomitant]
     Dates: start: 20090819
  9. CITALOPRAM HYDROBROMIDE [Concomitant]
     Dates: start: 20090409
  10. CALAN [Concomitant]
     Dates: start: 20100128
  11. DILANTIN [Concomitant]
  12. ZOLPIDEM [Concomitant]
  13. PROCHLORPERAZINE [Concomitant]
     Dates: start: 20090515
  14. DIVALPROEX SODIUM [Concomitant]
     Dates: start: 20090812

REACTIONS (22)
  - ASTHENIA [None]
  - ATELECTASIS [None]
  - BLOOD SODIUM DECREASED [None]
  - BLOOD URINE PRESENT [None]
  - BRAIN OEDEMA [None]
  - CONVULSION [None]
  - DEHYDRATION [None]
  - DISEASE PROGRESSION [None]
  - DIZZINESS [None]
  - DYSSTASIA [None]
  - GLIOBLASTOMA MULTIFORME [None]
  - HYPERTENSION [None]
  - HYPOTENSION [None]
  - LEUKOCYTURIA [None]
  - MALIGNANT NEOPLASM PROGRESSION [None]
  - NITRITE URINE PRESENT [None]
  - NUCLEAR MAGNETIC RESONANCE IMAGING BRAIN ABNORMAL [None]
  - PNEUMONIA [None]
  - PROTEIN URINE PRESENT [None]
  - PYURIA [None]
  - TACHYCARDIA [None]
  - URINE KETONE BODY PRESENT [None]
